FAERS Safety Report 5915723-2 (Version None)
Quarter: 2008Q4

REPORT INFORMATION
  Report Type: 
  Country: None (occurrence: None)
  Receive Date: 20081010
  Receipt Date: 20081003
  Transmission Date: 20090506
  Serious: Yes (Life-Threatening, Hospitalization, Disabling)
  Sender: FDA-Public Use
  Company Number: FI-GENENTECH-248824

PATIENT
  Sex: Male

DRUGS (4)
  1. RITUXIMAB [Suspect]
     Indication: B-CELL LYMPHOMA
     Dosage: 650 MG, UNK
     Route: 042
     Dates: start: 20070807, end: 20071010
  2. PREDNISONE TAB [Concomitant]
     Indication: B-CELL LYMPHOMA
     Dosage: 100 MG, UNK
     Route: 048
     Dates: start: 20070807, end: 20071010
  3. CETIRIZINE HCL [Concomitant]
     Indication: B-CELL LYMPHOMA
     Dosage: 10 MG, UNK
     Route: 048
     Dates: start: 20070807, end: 20071010
  4. ACETAMINOPHEN [Concomitant]
     Indication: DRUG USE FOR UNKNOWN INDICATION

REACTIONS (1)
  - PNEUMONIA [None]
